FAERS Safety Report 13205145 (Version 1)
Quarter: 2017Q1

REPORT INFORMATION
  Report Type: Spontaneous
  Country: US (occurrence: US)
  Receive Date: 20170208
  Receipt Date: 20170208
  Transmission Date: 20170428
  Serious: No
  Sender: FDA-Public Use
  Company Number: None

PATIENT

DRUGS (2)
  1. BUPIVACAINE DEXTROSE SPINAL 7.5/82.5MG [Suspect]
     Active Substance: BUPIVACAINE
     Route: 037
  2. BUPIVACAINE DEXTROS SPINAL 7.5/82.5MG [Suspect]
     Active Substance: BUPIVACAINE
     Route: 037
     Dates: start: 20170124

REACTIONS (2)
  - Product quality issue [None]
  - Drug ineffective [None]

NARRATIVE: CASE EVENT DATE: 20170124
